FAERS Safety Report 18250248 (Version 4)
Quarter: 2020Q4

REPORT INFORMATION
  Report Type: Report from Study
  Country: US (occurrence: US)
  Receive Date: 20200910
  Receipt Date: 20201109
  Transmission Date: 20210113
  Serious: Yes (Other)
  Sender: FDA-Public Use
  Company Number: NVSC2020US244896

PATIENT
  Sex: Female
  Weight: 19.05 kg

DRUGS (1)
  1. ILARIS [Suspect]
     Active Substance: CANAKINUMAB
     Indication: JUVENILE IDIOPATHIC ARTHRITIS
     Dosage: 75 MG, Q4W
     Route: 065
     Dates: start: 20190623

REACTIONS (3)
  - Weight increased [Unknown]
  - Juvenile idiopathic arthritis [Unknown]
  - COVID-19 [Unknown]
